FAERS Safety Report 9329086 (Version 1)
Quarter: 2013Q2

REPORT INFORMATION
  Report Type: Spontaneous
  Country: US (occurrence: US)
  Receive Date: 20130604
  Receipt Date: 20130604
  Transmission Date: 20140414
  Serious: Yes (Other)
  Sender: FDA-Public Use
  Company Number: US-SANOFI-AVENTIS-2012SA076922

PATIENT
  Age: 60 Year
  Sex: Female
  Weight: 81.81 kg

DRUGS (14)
  1. LANTUS [Suspect]
     Indication: TYPE 2 DIABETES MELLITUS
     Dosage: DOSE:30 UNIT(S)
     Route: 058
     Dates: start: 20120810, end: 20121026
  2. LANTUS [Suspect]
     Indication: TYPE 2 DIABETES MELLITUS
     Dosage: ALSO REPORTED TAKING 25 OR 26 UNITS A DAY. DOSE:20 UNIT(S)
     Route: 058
     Dates: start: 201210
  3. LANTUS [Suspect]
     Indication: TYPE 2 DIABETES MELLITUS
     Dosage: DOSE:26 UNIT(S)
     Route: 058
     Dates: start: 201301
  4. NOVOLOG [Suspect]
     Indication: TYPE 2 DIABETES MELLITUS
     Dosage: 1 UNIT PEN, 15 CARBS PER MEAL THREE TIMES A DAY
     Route: 065
     Dates: start: 2010
  5. LEVOTHYROXINE [Concomitant]
     Indication: THYROID DISORDER
     Dosage: ALSO REPORTED STARTING IN 2002
     Dates: start: 2007
  6. AMARYL [Concomitant]
     Indication: DIABETES MELLITUS
     Dosage: ALSO REPORTED STARTING IN 2007 TWICE A DAY.
     Dates: start: 2010
  7. DIOVANE [Concomitant]
     Indication: BLOOD PRESSURE ABNORMAL
     Dosage: ALSO REPORTED STARTING IN 2006
     Dates: start: 2009
  8. VENTOLINE [Concomitant]
     Indication: ASTHMA
     Dosage: 8 TIMES PER DAY, 2 PUFFS EACH. ALSO REPORTED AS NEEDED AND STARTED IN 2001
     Dates: start: 2000
  9. CARAFATE [Concomitant]
     Indication: ULCER
     Dates: start: 201208
  10. PULMICORT [Concomitant]
     Dosage: ALSO REPORTED STARTING IN NOVEMBER 2012
     Dates: start: 201210
  11. FISH OIL [Concomitant]
     Indication: BLOOD CHOLESTEROL ABNORMAL
     Dosage: ONE PER DAY
  12. BIOTIN/PANTOTHENIC ACID/VITAMIN A [Concomitant]
     Indication: ROUTINE HEALTH MAINTENANCE
  13. ALBUTEROL [Concomitant]
  14. OXYGEN [Concomitant]

REACTIONS (8)
  - Hypoglycaemia [Recovered/Resolved]
  - Feeling abnormal [Recovered/Resolved]
  - Blood glucose decreased [Recovered/Resolved]
  - Feeling abnormal [Recovered/Resolved]
  - Blood glucose increased [Unknown]
  - Rash generalised [Unknown]
  - Pruritus generalised [Unknown]
  - Feeling cold [Unknown]
